FAERS Safety Report 12600584 (Version 1)
Quarter: 2016Q3

REPORT INFORMATION
  Report Type: Spontaneous
  Country: CH (occurrence: CH)
  Receive Date: 20160727
  Receipt Date: 20160727
  Transmission Date: 20161109
  Serious: Yes (Hospitalization)
  Sender: FDA-Public Use
  Company Number: CH-TAKEDA-2016TUS013015

PATIENT
  Age: 64 Year
  Sex: Female

DRUGS (4)
  1. ENTOCORT [Concomitant]
     Active Substance: BUDESONIDE
     Dosage: 9 MG, QD
  2. ENTYVIO [Suspect]
     Active Substance: VEDOLIZUMAB
     Indication: COLITIS MICROSCOPIC
     Dosage: UNK
     Route: 065
     Dates: start: 20160615
  3. ENTOCORT [Concomitant]
     Active Substance: BUDESONIDE
     Dosage: 9 MG, QD
  4. METOJECT [Concomitant]
     Active Substance: METHOTREXATE SODIUM
     Indication: EOSINOPHILIC FASCIITIS
     Dosage: 15 MG, 1/WEEK

REACTIONS (2)
  - Transient ischaemic attack [Unknown]
  - Off label use [Unknown]

NARRATIVE: CASE EVENT DATE: 20160615
